FAERS Safety Report 7773699-X (Version None)
Quarter: 2011Q3

REPORT INFORMATION
  Report Type: 
  Country: None (occurrence: None)
  Receive Date: 20110920
  Receipt Date: 20110909
  Transmission Date: 20111222
  Serious: Yes (Death, Other)
  Sender: FDA-Public Use
  Company Number: US-006278

PATIENT
  Age: 4 Year
  Sex: Male

DRUGS (2)
  1. SOMATROPIN RDNA [Suspect]
     Indication: BODY HEIGHT BELOW NORMAL
  2. LEVOTHYROXINE SODIUM [Concomitant]

REACTIONS (11)
  - BONE SARCOMA [None]
  - METASTASES TO LUNG [None]
  - PATHOLOGICAL FRACTURE [None]
  - NEUTROPENIA [None]
  - OESOPHAGEAL STENOSIS [None]
  - MUCOSAL INFLAMMATION [None]
  - METASTASES TO CENTRAL NERVOUS SYSTEM [None]
  - METASTASES TO HEART [None]
  - LEG AMPUTATION [None]
  - PYREXIA [None]
  - CANDIDIASIS [None]
